FAERS Safety Report 5336444-3 (Version None)
Quarter: 2007Q2

REPORT INFORMATION
  Report Type: 
  Country: None (occurrence: None)
  Receive Date: 20070523
  Receipt Date: 20070508
  Transmission Date: 20071010
  Serious: Yes (Hospitalization)
  Sender: FDA-Public Use
  Company Number: 8023739

PATIENT
  Age: 3 Year
  Sex: Male

DRUGS (3)
  1. KEPPRA [Suspect]
     Indication: CONVULSION
     Dosage: 100 MG 2/D PO
     Route: 048
     Dates: start: 20070101, end: 20070201
  2. KEPPRA [Suspect]
     Indication: CONVULSION
     Dosage: 300 MG 2/D PO
     Route: 048
     Dates: start: 20070201, end: 20070301
  3. VALPROATE SODIUM [Suspect]
     Dosage: 350 MG 2/D PO
     Route: 048

REACTIONS (5)
  - COAGULOPATHY [None]
  - CONTUSION [None]
  - INTERNATIONAL NORMALISED RATIO INCREASED [None]
  - MOUTH HAEMORRHAGE [None]
  - THROMBOCYTOPENIA [None]
